FAERS Safety Report 12094040 (Version 1)
Quarter: 2016Q1

REPORT INFORMATION
  Report Type: Report from Study
  Country: US (occurrence: US)
  Receive Date: 20160219
  Receipt Date: 20160219
  Transmission Date: 20160526
  Serious: Yes (Hospitalization)
  Sender: FDA-Public Use
  Company Number: US-ABBVIE-16K-163-1560333-00

PATIENT
  Age: 59 Year
  Sex: Female

DRUGS (5)
  1. BUDESONIDE. [Concomitant]
     Active Substance: BUDESONIDE
     Indication: CROHN^S DISEASE
     Route: 048
     Dates: start: 201511, end: 201512
  2. HUMIRA [Suspect]
     Active Substance: ADALIMUMAB
     Indication: CROHN^S DISEASE
     Route: 058
     Dates: start: 20150612
  3. BUDESONIDE. [Concomitant]
     Active Substance: BUDESONIDE
     Dosage: 10-APR-2016 PREDICTED STOP
     Route: 048
     Dates: start: 20160210
  4. BUDESONIDE. [Concomitant]
     Active Substance: BUDESONIDE
     Route: 048
     Dates: start: 201512
  5. Z-PACK [Suspect]
     Active Substance: AZITHROMYCIN DIHYDRATE
     Indication: NASOPHARYNGITIS
     Route: 065
     Dates: start: 2016

REACTIONS (7)
  - Small intestinal obstruction [Unknown]
  - Crohn^s disease [Recovered/Resolved]
  - Crohn^s disease [Recovering/Resolving]
  - Nasopharyngitis [Unknown]
  - Abdominal distension [Recovering/Resolving]
  - Crohn^s disease [Recovered/Resolved]
  - Drug ineffective [Not Recovered/Not Resolved]

NARRATIVE: CASE EVENT DATE: 2015
